FAERS Safety Report 4716005-7 (Version None)
Quarter: 2005Q3

REPORT INFORMATION
  Report Type: 
  Country: None (occurrence: None)
  Receive Date: 20050718
  Receipt Date: 20050704
  Transmission Date: 20060218
  Serious: Yes (Hospitalization)
  Sender: FDA-Public Use
  Company Number: FR-GLAXOSMITHKLINE-B0386866A

PATIENT
  Age: 60 Year
  Sex: Male
  Weight: 70 kg

DRUGS (2)
  1. LAMICTAL [Suspect]
     Indication: EPILEPSY
     Route: 048
  2. DEPAKENE [Suspect]
     Indication: EPILEPSY
     Route: 048

REACTIONS (13)
  - BLISTER [None]
  - CORNEAL ABRASION [None]
  - DERMATITIS BULLOUS [None]
  - DYSPHAGIA [None]
  - EYE PAIN [None]
  - FACE OEDEMA [None]
  - HYPERTHERMIA [None]
  - MOUTH HAEMORRHAGE [None]
  - ORAL SOFT TISSUE DISORDER [None]
  - PYREXIA [None]
  - RASH [None]
  - TOXIC EPIDERMAL NECROLYSIS [None]
  - URTICARIA [None]
